FAERS Safety Report 14549368 (Version 5)
Quarter: 2018Q4

REPORT INFORMATION
  Report Type: Report from Study
  Country: IT (occurrence: IT)
  Receive Date: 20180219
  Receipt Date: 20181017
  Transmission Date: 20190204
  Serious: Yes (Hospitalization)
  Sender: FDA-Public Use
  Company Number: IT-ACCORD-063598

PATIENT
  Age: 70 Year
  Sex: Female

DRUGS (1)
  1. OXALIPLATIN. [Suspect]
     Active Substance: OXALIPLATIN
     Indication: PANCREATIC CARCINOMA
     Dates: start: 20170803, end: 20170803

REACTIONS (5)
  - Loss of consciousness [Recovered/Resolved]
  - Off label use [Unknown]
  - Dysaesthesia [Recovered/Resolved]
  - Dysstasia [Recovered/Resolved]
  - Tremor [Recovered/Resolved]

NARRATIVE: CASE EVENT DATE: 20170803
